FAERS Safety Report 23600804 (Version 1)
Quarter: 2024Q1

REPORT INFORMATION
  Report Type: Spontaneous
  Country: US (occurrence: None)
  Receive Date: 20240305
  Receipt Date: 20240305
  Transmission Date: 20240410
  Serious: Yes (Life-Threatening, Hospitalization, Other)
  Sender: FDA-Public Use
  Company Number: None

PATIENT
  Age: 70 Year
  Sex: Male
  Weight: 76.5 kg

DRUGS (6)
  1. LENVIMA [Suspect]
     Active Substance: LENVATINIB
     Indication: Hepatic cancer
  2. PD dialysis severlamer tabs [Concomitant]
  3. SIMVASTATIN [Concomitant]
     Active Substance: SIMVASTATIN
  4. Micera injection [Concomitant]
  5. VITAMIN B [Concomitant]
     Active Substance: VITAMIN B
  6. VITAMIN D [Concomitant]
     Active Substance: VITAMIN D NOS

REACTIONS (5)
  - End stage renal disease [None]
  - Dialysis [None]
  - Product prescribing issue [None]
  - Iatrogenic injury [None]
  - Product communication issue [None]

NARRATIVE: CASE EVENT DATE: 20230703
